FAERS Safety Report 6694163-5 (Version None)
Quarter: 2010Q2

REPORT INFORMATION
  Report Type: 
  Country: None (occurrence: None)
  Receive Date: 20100423
  Receipt Date: 20100129
  Transmission Date: 20101027
  Serious: No
  Sender: FDA-Public Use
  Company Number: A0842119A

PATIENT
  Age: 78 Year
  Sex: Female

DRUGS (10)
  1. FLOVENT [Suspect]
     Indication: ASTHMA
     Dosage: 2PUFF TWICE PER DAY
     Route: 055
     Dates: start: 20100129
  2. ATROVENT [Concomitant]
  3. XOPENEX [Concomitant]
  4. RYTHMOL [Concomitant]
  5. DILTIAZEM HCL [Concomitant]
  6. LOPRESSOR [Concomitant]
  7. WARFARIN SODIUM [Concomitant]
  8. LEVOTHYROXINE SODIUM [Concomitant]
  9. ZOCOR [Concomitant]
  10. XANAX [Concomitant]

REACTIONS (2)
  - DYSPHONIA [None]
  - THROAT IRRITATION [None]
